FAERS Safety Report 10188594 (Version 1)
Quarter: 2014Q2

REPORT INFORMATION
  Report Type: Spontaneous
  Country: US (occurrence: US)
  Receive Date: 20140522
  Receipt Date: 20140522
  Transmission Date: 20141212
  Serious: No
  Sender: FDA-Public Use
  Company Number: US-SA-2014SA033999

PATIENT
  Sex: Female

DRUGS (2)
  1. LANTUS [Suspect]
     Indication: DIABETES MELLITUS
     Route: 065
  2. APIDRA [Concomitant]

REACTIONS (4)
  - Injection site reaction [Unknown]
  - Erythema [Unknown]
  - Pruritus [Unknown]
  - Exposure during pregnancy [Unknown]
